FAERS Safety Report 4705060-6 (Version None)
Quarter: 2005Q3

REPORT INFORMATION
  Report Type: 
  Country: None (occurrence: None)
  Receive Date: 20050701
  Receipt Date: 20050622
  Transmission Date: 20060218
  Serious: Yes (Hospitalization)
  Sender: FDA-Public Use
  Company Number: 2005AP03435

PATIENT
  Sex: Male

DRUGS (6)
  1. SEROQUEL [Suspect]
     Indication: SCHIZOPHRENIA
     Dosage: COMMENCED IN JANUARY OF AN UNSPECIFIED YEAR
     Route: 048
  2. SEROQUEL [Suspect]
     Dosage: COMMENCED 13 DECEMBER OF UNSPEDIFIED YEAR
     Route: 048
  3. BROMPERIDOL [Concomitant]
     Indication: PSYCHIATRIC SYMPTOM
     Route: 048
  4. RISPERIDONE [Concomitant]
     Indication: PSYCHIATRIC SYMPTOM
     Route: 048
  5. PHENYTOIN [Concomitant]
     Indication: EPILEPSY
  6. VALPROATE SODIUM [Concomitant]
     Indication: EPILEPSY

REACTIONS (5)
  - BLOOD PRESSURE DECREASED [None]
  - COORDINATION ABNORMAL [None]
  - DEPRESSED LEVEL OF CONSCIOUSNESS [None]
  - HYPOTHERMIA [None]
  - UNRESPONSIVE TO VERBAL STIMULI [None]
